FAERS Safety Report 7181042-2 (Version None)
Quarter: 2010Q4

REPORT INFORMATION
  Report Type: 
  Country: None (occurrence: None)
  Receive Date: 20101221
  Receipt Date: 20100415
  Transmission Date: 20110411
  Serious: No
  Sender: FDA-Public Use
  Company Number: US-AMGEN-KDL406591

PATIENT

DRUGS (3)
  1. ENBREL [Suspect]
     Indication: RHEUMATOID ARTHRITIS
     Dosage: 50 MG, QWK
     Route: 058
  2. HYDROXYCHLOROQUINE SULFATE [Concomitant]
     Dosage: 200 MG, BID
  3. VALPROATE SEMISODIUM [Concomitant]

REACTIONS (4)
  - FATIGUE [None]
  - RHEUMATOID ARTHRITIS [None]
  - SOMNOLENCE [None]
  - TOOTH EROSION [None]
